FAERS Safety Report 23330857 (Version 1)
Quarter: 2023Q4

REPORT INFORMATION
  Report Type: Spontaneous
  Country: US (occurrence: US)
  Receive Date: 20231222
  Receipt Date: 20231222
  Transmission Date: 20240110
  Serious: No
  Sender: FDA-Public Use
  Company Number: US-ABBVIE-5549382

PATIENT
  Age: 38 Year
  Sex: Female
  Weight: 89.811 kg

DRUGS (4)
  1. LILETTA [Suspect]
     Active Substance: LEVONORGESTREL
     Indication: Contraception
     Dosage: 52 MILLIGRAM
     Route: 015
     Dates: start: 20230926
  2. MIRALAX [Concomitant]
     Active Substance: POLYETHYLENE GLYCOL 3350
     Indication: Constipation
  3. LEXAPRO [Concomitant]
     Active Substance: ESCITALOPRAM OXALATE
     Indication: Depression
  4. WEGOVY [Concomitant]
     Active Substance: SEMAGLUTIDE
     Indication: Obesity

REACTIONS (3)
  - Device expulsion [Recovered/Resolved]
  - Device dislocation [Not Recovered/Not Resolved]
  - Device expulsion [Not Recovered/Not Resolved]

NARRATIVE: CASE EVENT DATE: 20231027
